FAERS Safety Report 22310048 (Version 2)
Quarter: 2023Q2

REPORT INFORMATION
  Report Type: Spontaneous
  Country: US (occurrence: US)
  Receive Date: 20230511
  Receipt Date: 20230517
  Transmission Date: 20230721
  Serious: No
  Sender: FDA-Public Use
  Company Number: US-ALKERMES INC.-ALK-2023-001962

PATIENT
  Sex: Female

DRUGS (1)
  1. LYBALVI [Suspect]
     Active Substance: OLANZAPINE\SAMIDORPHAN L-MALATE
     Indication: Agitation
     Dosage: UNK, QD
     Route: 048
     Dates: start: 2022

REACTIONS (2)
  - Off label use [Not Recovered/Not Resolved]
  - Weight fluctuation [None]

NARRATIVE: CASE EVENT DATE: 20220101
